FAERS Safety Report 7362544-2 (Version None)
Quarter: 2011Q1

REPORT INFORMATION
  Report Type: 
  Country: None (occurrence: None)
  Receive Date: 20110318
  Receipt Date: 20110315
  Transmission Date: 20110831
  Serious: Yes (Death, Hospitalization, Other)
  Sender: FDA-Public Use
  Company Number: US-AMGEN-USASP2011009505

PATIENT
  Age: 89 Year
  Sex: Male
  Weight: 72.109 kg

DRUGS (6)
  1. LEVOXYL [Concomitant]
     Dosage: 137 A?G, QD
  2. LASIX [Concomitant]
     Dosage: 40 MG, QOD
  3. LIPITOR [Concomitant]
     Dosage: 80 MG, QD
  4. ALDACTONE [Concomitant]
     Dosage: 25 MG, QD
  5. QUINAPRIL [Concomitant]
     Dosage: 40 MG, QD
  6. NPLATE [Suspect]
     Indication: IDIOPATHIC THROMBOCYTOPENIC PURPURA
     Dosage: 150 A?G, QWK
     Route: 058
     Dates: start: 20100903, end: 20101105

REACTIONS (9)
  - SUDDEN CARDIAC DEATH [None]
  - HYPOXIA [None]
  - VENTRICULAR FIBRILLATION [None]
  - UNRESPONSIVE TO STIMULI [None]
  - EMBOLIC STROKE [None]
  - LOSS OF CONSCIOUSNESS [None]
  - ATRIAL FIBRILLATION [None]
  - DIARRHOEA [None]
  - ABDOMINAL DISCOMFORT [None]
